FAERS Safety Report 12943609 (Version 1)
Quarter: 2016Q4

REPORT INFORMATION
  Report Type: Spontaneous
  Country: US (occurrence: US)
  Receive Date: 20161115
  Receipt Date: 20161115
  Transmission Date: 20170207
  Serious: No
  Sender: FDA-Public Use
  Company Number: US-BAYER-2016-212053

PATIENT
  Age: 76 Year
  Sex: Female
  Weight: 58.96 kg

DRUGS (4)
  1. MIRALAX [Suspect]
     Active Substance: POLYETHYLENE GLYCOL 3350
     Indication: CONSTIPATION PROPHYLAXIS
     Dosage: HALF A DOSE, TID
     Dates: start: 201606
  2. MIRALAX [Suspect]
     Active Substance: POLYETHYLENE GLYCOL 3350
     Indication: CONSTIPATION PROPHYLAXIS
     Dosage: 1 DOSE, TID
     Dates: start: 201605
  3. CITRACAL [Concomitant]
     Active Substance: CALCIUM CITRATE
     Indication: CONSTIPATION PROPHYLAXIS
     Dosage: 1 T, QD
  4. MIRALAX [Suspect]
     Active Substance: POLYETHYLENE GLYCOL 3350
     Indication: CONSTIPATION PROPHYLAXIS
     Dosage: 2 DOSE, UNK
     Route: 048
     Dates: start: 201605, end: 201610

REACTIONS (6)
  - Off label use [None]
  - Frequent bowel movements [None]
  - Underdose [None]
  - Product use issue [Unknown]
  - Feeling abnormal [Recovered/Resolved]
  - Decreased appetite [Recovering/Resolving]

NARRATIVE: CASE EVENT DATE: 201605
